FAERS Safety Report 21987820 (Version 1)
Quarter: 2023Q1

REPORT INFORMATION
  Report Type: Spontaneous
  Country: US (occurrence: US)
  Receive Date: 20230214
  Receipt Date: 20230214
  Transmission Date: 20230417
  Serious: Yes (Other)
  Sender: FDA-Public Use
  Company Number: US-SUN PHARMACEUTICAL INDUSTRIES LTD-2023R1-377989

PATIENT
  Age: 43 Year
  Sex: Female

DRUGS (3)
  1. DOXYCYCLINE [Suspect]
     Active Substance: DOXYCYCLINE
     Indication: Breast abscess
     Dosage: UNK
     Route: 065
  2. DOXYCYCLINE [Suspect]
     Active Substance: DOXYCYCLINE
     Indication: Plasma cell mastitis
  3. CEPHALEXIN [Suspect]
     Active Substance: CEPHALEXIN
     Indication: Breast mass
     Dosage: 500 MILLIGRAM, QID
     Route: 065

REACTIONS (1)
  - Therapy partial responder [Unknown]
